FAERS Safety Report 5935720-0 (Version None)
Quarter: 2008Q4

REPORT INFORMATION
  Report Type: 
  Country: None (occurrence: None)
  Receive Date: 20081028
  Receipt Date: 20081017
  Transmission Date: 20090506
  Serious: Yes (Hospitalization)
  Sender: FDA-Public Use
  Company Number: TRP_01097_2008

PATIENT
  Sex: Male

DRUGS (7)
  1. RIBASPHERE [Suspect]
     Indication: HEPATITIS C
     Dosage: 1000 MG ORAL, 400 MG ORAL, 800 MG ORAL, 600 MG ORAL
     Route: 048
     Dates: start: 20071230, end: 20080101
  2. RIBASPHERE [Suspect]
     Indication: HEPATITIS C
     Dosage: 1000 MG ORAL, 400 MG ORAL, 800 MG ORAL, 600 MG ORAL
     Route: 048
     Dates: start: 20080101, end: 20080201
  3. RIBASPHERE [Suspect]
     Indication: HEPATITIS C
     Dosage: 1000 MG ORAL, 400 MG ORAL, 800 MG ORAL, 600 MG ORAL
     Route: 048
     Dates: start: 20080219, end: 20080801
  4. RIBASPHERE [Suspect]
     Indication: HEPATITIS C
     Dosage: 1000 MG ORAL, 400 MG ORAL, 800 MG ORAL, 600 MG ORAL
     Route: 048
     Dates: start: 20080807, end: 20080914
  5. PEGASYS [Suspect]
     Indication: HEPATITIS C
     Dosage: 180 ?G 1X/WEEK SUBCUTANEOUS, 90 ?G 1X/WEEK SUBCUTANEOUS
     Route: 058
     Dates: start: 20071230, end: 20080801
  6. PEGASYS [Suspect]
     Indication: HEPATITIS C
     Dosage: 180 ?G 1X/WEEK SUBCUTANEOUS, 90 ?G 1X/WEEK SUBCUTANEOUS
     Route: 058
     Dates: start: 20080807, end: 20080914
  7. ZOLOFT [Concomitant]

REACTIONS (22)
  - ANAEMIA [None]
  - ARTHRALGIA [None]
  - CONDITION AGGRAVATED [None]
  - DEPRESSION [None]
  - DIZZINESS [None]
  - EAR INFECTION [None]
  - EPISTAXIS [None]
  - EYE SWELLING [None]
  - FATIGUE [None]
  - FUNGAL INFECTION [None]
  - INCREASED UPPER AIRWAY SECRETION [None]
  - INSOMNIA [None]
  - LOSS OF CONSCIOUSNESS [None]
  - NAUSEA [None]
  - OROPHARYNGEAL PAIN [None]
  - PNEUMONIA [None]
  - PYREXIA [None]
  - STOMATITIS [None]
  - VISION BLURRED [None]
  - VISUAL IMPAIRMENT [None]
  - WEIGHT DECREASED [None]
  - WHEEZING [None]
